FAERS Safety Report 21466720 (Version 2)
Quarter: 2022Q4

REPORT INFORMATION
  Report Type: Report from Study
  Country: US (occurrence: US)
  Receive Date: 20221017
  Receipt Date: 20221019
  Transmission Date: 20230113
  Serious: No
  Sender: FDA-Public Use
  Company Number: US-NOVARTISTESTPH-NVSC2022US233259

PATIENT
  Sex: Female

DRUGS (1)
  1. MAYZENT [Suspect]
     Active Substance: SIPONIMOD
     Indication: Multiple sclerosis
     Dosage: 20 MG, QD
     Route: 048
     Dates: start: 20221003

REACTIONS (3)
  - Fatigue [Unknown]
  - Headache [Recovering/Resolving]
  - Gait disturbance [Not Recovered/Not Resolved]
